FAERS Safety Report 7701767-7 (Version None)
Quarter: 2011Q3

REPORT INFORMATION
  Report Type: 
  Country: None (occurrence: None)
  Receive Date: 20110822
  Receipt Date: 20110811
  Transmission Date: 20111222
  Serious: Yes (Hospitalization, Other)
  Sender: FDA-Public Use
  Company Number: US-BAYER-2011-037117

PATIENT
  Age: 21 Year
  Sex: Female
  Weight: 148.75 kg

DRUGS (6)
  1. YASMIN [Suspect]
     Indication: DYSFUNCTIONAL UTERINE BLEEDING
  2. AZITHROMYCIN [Concomitant]
     Dosage: 250 MG, UNK
  3. YASMIN [Suspect]
     Indication: CONTRACEPTION
     Dates: start: 20030501, end: 20040401
  4. ALBUTEROL SULFATE AUTOHALER [Concomitant]
  5. METFORMIN [Concomitant]
     Dosage: 500 MG, UNK
     Dates: start: 20010101, end: 20050101
  6. LEVOTHYROXINE SODIUM [Concomitant]
     Dosage: 0.1 UNK, UNK
     Dates: start: 20010101, end: 20050101

REACTIONS (10)
  - PULMONARY EMBOLISM [None]
  - OEDEMA PERIPHERAL [None]
  - DYSPNOEA [None]
  - ANXIETY [None]
  - PYREXIA [None]
  - DEEP VEIN THROMBOSIS [None]
  - PAIN IN EXTREMITY [None]
  - FEAR [None]
  - INJURY [None]
  - HAEMATOMA [None]
